FAERS Safety Report 9280045 (Version 1)
Quarter: 2013Q2

REPORT INFORMATION
  Report Type: Spontaneous
  Country: US (occurrence: US)
  Receive Date: 20130509
  Receipt Date: 20130509
  Transmission Date: 20140414
  Serious: No
  Sender: FDA-Public Use
  Company Number: US-009507513-1305USA001335

PATIENT
  Sex: Female
  Weight: 89.8 kg

DRUGS (12)
  1. IMPLANON [Suspect]
     Indication: OVARIAN FAILURE
     Dosage: 1 DF, IN THE RIGHT ARM
     Route: 059
     Dates: start: 20110729
  2. CALCIUM (UNSPECIFIED) [Concomitant]
  3. NEXIUM [Concomitant]
  4. ASPIRIN [Concomitant]
  5. NORVASC [Concomitant]
  6. ACTOS [Concomitant]
  7. METFORMIN [Concomitant]
  8. ZOLOFT [Concomitant]
  9. XANAX [Concomitant]
  10. LANTUS [Concomitant]
  11. HUMALOG [Concomitant]
  12. SIMVASTATIN [Concomitant]

REACTIONS (2)
  - Medical device complication [Not Recovered/Not Resolved]
  - No adverse event [Unknown]
